FAERS Safety Report 8717843 (Version 2)
Quarter: 2015Q2

REPORT INFORMATION
  Report Type: Report from Study
  Country: US (occurrence: US)
  Receive Date: 20120810
  Receipt Date: 20150604
  Transmission Date: 20150821
  Serious: Yes (Death)
  Sender: FDA-Public Use
  Company Number: US-ROCHE-1096791

PATIENT
  Sex: Male

DRUGS (13)
  1. ACTIVASE [Suspect]
     Active Substance: ALTEPLASE
     Indication: IMPLANT SITE REACTION
  2. CALCIUM GLUCONATE. [Concomitant]
     Active Substance: CALCIUM GLUCONATE
     Dosage: 2MG/20ML
     Route: 042
  3. INTEGRILIN [Concomitant]
     Active Substance: EPTIFIBATIDE
     Route: 042
  4. ACTIVASE [Suspect]
     Active Substance: ALTEPLASE
     Indication: GRAFT COMPLICATION
  5. PEPCID [Concomitant]
     Active Substance: FAMOTIDINE
     Route: 042
  6. ATROPINE SULPHATE [Concomitant]
     Active Substance: ATROPINE SULFATE
     Dosage: 1MG/10ML
     Route: 042
  7. EPINEPHRINE. [Concomitant]
     Active Substance: EPINEPHRINE
     Dosage: 1MG/10ML
     Route: 065
  8. CORDARONE [Concomitant]
     Active Substance: AMIODARONE HYDROCHLORIDE
     Route: 042
  9. LOVENOX [Concomitant]
     Active Substance: ENOXAPARIN SODIUM
     Route: 042
  10. PEPCID [Concomitant]
     Active Substance: FAMOTIDINE
     Route: 048
  11. ACTIVASE [Suspect]
     Active Substance: ALTEPLASE
     Indication: EMBOLISM
     Route: 042
  12. ACTIVASE [Suspect]
     Active Substance: ALTEPLASE
     Indication: MEDICAL DEVICE COMPLICATION
  13. ASPIRIN. [Concomitant]
     Active Substance: ASPIRIN
     Route: 048

REACTIONS (1)
  - Death [Fatal]
